FAERS Safety Report 26060246 (Version 2)
Quarter: 2025Q4

REPORT INFORMATION
  Report Type: Report from Study
  Country: US (occurrence: US)
  Receive Date: 20251118
  Receipt Date: 20251120
  Transmission Date: 20260118
  Serious: No
  Sender: MALLINCKRODT
  Company Number: US-MALLINCKRODT-MNK202507266

PATIENT
  Age: 68 Year
  Sex: Female

DRUGS (1)
  1. CORTICOTROPIN [Suspect]
     Active Substance: CORTICOTROPIN
     Indication: Polymyositis
     Dosage: 80 UNITS
     Route: 058

REACTIONS (1)
  - Enzyme level increased [Unknown]
